FAERS Safety Report 5797546-0 (Version None)
Quarter: 2008Q3

REPORT INFORMATION
  Report Type: 
  Country: None (occurrence: None)
  Receive Date: 20080702
  Receipt Date: 20080625
  Transmission Date: 20090109
  Serious: Yes (Death)
  Sender: FDA-Public Use
  Company Number: NL-JNJFOC-20080700172

PATIENT
  Age: 88 Year
  Sex: Female
  Weight: 45 kg

DRUGS (1)
  1. REOPRO [Suspect]
     Indication: CATHETERISATION CARDIAC

REACTIONS (1)
  - HAEMORRHAGE [None]
